FAERS Safety Report 5765723-0 (Version None)
Quarter: 2008Q2

REPORT INFORMATION
  Report Type: 
  Country: None (occurrence: None)
  Receive Date: 20080611
  Receipt Date: 20080603
  Transmission Date: 20081010
  Serious: Yes (Other)
  Sender: FDA-Public Use
  Company Number: PHHY2008PH09692

PATIENT

DRUGS (2)
  1. EXFORGE [Suspect]
     Dosage: UNK
  2. METFORMIN HCL [Concomitant]

REACTIONS (1)
  - ASTHMA [None]
